FAERS Safety Report 8612278-9 (Version None)
Quarter: 2012Q3

REPORT INFORMATION
  Report Type: 
  Country: None (occurrence: None)
  Receive Date: 20120822
  Receipt Date: 20120815
  Transmission Date: 20120928
  Serious: Yes (Life-Threatening)
  Sender: FDA-Public Use
  Company Number: GB-TEVA-353949ISR

PATIENT
  Sex: Female

DRUGS (2)
  1. TRIMETHOPRIM [Suspect]
  2. BLOOD PRESSURE MEDICATIONS [Concomitant]

REACTIONS (3)
  - MALAISE [None]
  - DERMATITIS ALLERGIC [None]
  - DYSPNOEA [None]
